FAERS Safety Report 5882440-7 (Version None)
Quarter: 2008Q3

REPORT INFORMATION
  Report Type: 
  Country: None (occurrence: None)
  Receive Date: 20080913
  Receipt Date: 20080801
  Transmission Date: 20090109
  Serious: No
  Sender: FDA-Public Use
  Company Number: US-ABBOTT-08P-163-0468919-00

PATIENT
  Sex: Female
  Weight: 95.34 kg

DRUGS (9)
  1. HUMIRA [Suspect]
     Indication: PSORIASIS
     Route: 050
     Dates: start: 20080701
  2. LEVOTHYROXINE SODIUM [Concomitant]
     Indication: HYPOTHYROIDISM
     Route: 048
  3. TRAMADOL HCL [Concomitant]
     Indication: PAIN
     Route: 048
  4. ALPRAZOLAM [Concomitant]
     Indication: ANXIETY
     Route: 048
  5. YAZ [Concomitant]
     Indication: CONTRACEPTION
     Route: 048
  6. ZEGRID [Concomitant]
     Indication: GASTRITIS
     Route: 048
     Dates: start: 20080701
  7. CHOLESTYRAMINE [Concomitant]
     Indication: DIARRHOEA
     Route: 048
  8. TYLENOL MIGRAINE [Concomitant]
     Indication: PAIN
     Route: 048
  9. NAPROXEN SODIUM [Concomitant]
     Indication: PAIN
     Route: 048

REACTIONS (2)
  - CONTUSION [None]
  - PAIN IN EXTREMITY [None]
